FAERS Safety Report 9351636 (Version 1)
Quarter: 2013Q2

REPORT INFORMATION
  Report Type: Spontaneous
  Country: US (occurrence: US)
  Receive Date: 20130617
  Receipt Date: 20130617
  Transmission Date: 20140414
  Serious: Yes (Hospitalization)
  Sender: FDA-Public Use
  Company Number: US-INCYTE CORPORATION-2013IN000766

PATIENT
  Age: 71 Year
  Sex: Female

DRUGS (11)
  1. JAKAFI [Suspect]
     Indication: MYELOFIBROSIS
     Dosage: 15 MG, BID
     Route: 048
     Dates: start: 20120823, end: 201304
  2. JAKAFI [Suspect]
     Dosage: 10 MG, BID
     Route: 048
     Dates: start: 201304
  3. VENLAFAXINE [Concomitant]
  4. GABAPENTIN [Concomitant]
  5. LEVOTHYROXINE [Concomitant]
  6. NEXIUM [Concomitant]
  7. PRAMIPEXOLE [Concomitant]
  8. HYDROXYZINE [Concomitant]
  9. ESTRADIOL [Concomitant]
  10. LISINOPRIL [Concomitant]
  11. FLECAINIDE [Concomitant]

REACTIONS (3)
  - Diarrhoea [Unknown]
  - Syncope [Unknown]
  - Anaemia [Unknown]
